FAERS Safety Report 10007230 (Version 2)
Quarter: 2014Q2

REPORT INFORMATION
  Report Type: Spontaneous
  Country: US (occurrence: US)
  Receive Date: 20140313
  Receipt Date: 20140507
  Transmission Date: 20141212
  Serious: Yes (Other)
  Sender: FDA-Public Use
  Company Number: US-BAYER-2014-036407

PATIENT
  Age: 30 Year
  Sex: Female
  Weight: 82.09 kg

DRUGS (2)
  1. MIRENA [Suspect]
     Indication: CONTRACEPTION
     Dosage: 20 MCG/24HR, CONT
     Route: 015
     Dates: start: 20110210, end: 20140304
  2. CYMBALTA [Concomitant]
     Dosage: 60 MG, UNK

REACTIONS (5)
  - Device dislocation [None]
  - Pregnancy with contraceptive device [Not Recovered/Not Resolved]
  - Nausea [Not Recovered/Not Resolved]
  - Drug ineffective [None]
  - Vomiting [Not Recovered/Not Resolved]
